FAERS Safety Report 4414063-0 (Version None)
Quarter: 2004Q3

REPORT INFORMATION
  Report Type: 
  Country: None (occurrence: None)
  Receive Date: 20040803
  Receipt Date: 20040723
  Transmission Date: 20050211
  Serious: Yes (Other)
  Sender: FDA-Public Use
  Company Number: JP-BRISTOL-MYERS SQUIBB COMPANY-12656161

PATIENT
  Age: 50 Year
  Sex: Male

DRUGS (3)
  1. ETOPOSIDE [Suspect]
     Indication: EWING'S SARCOMA
  2. IFOSFAMIDE [Suspect]
     Indication: EWING'S SARCOMA
  3. DOXORUBICIN HCL [Suspect]
     Indication: EWING'S SARCOMA

REACTIONS (2)
  - PANCYTOPENIA [None]
  - PNEUMONIA [None]
